FAERS Safety Report 12835879 (Version 1)
Quarter: 2016Q4

REPORT INFORMATION
  Report Type: Spontaneous
  Country: US (occurrence: US)
  Receive Date: 20161008
  Receipt Date: 20161008
  Transmission Date: 20170207
  Serious: Yes (Hospitalization)
  Sender: FDA-Public Use
  Company Number: None

PATIENT
  Age: 74 Year
  Sex: Female
  Weight: 73 kg

DRUGS (4)
  1. HYDROCHLOROTHIAZIDE/LOSARTAN [Concomitant]
     Active Substance: HYDROCHLOROTHIAZIDE\LOSARTAN
  2. CARBOPLATIN. [Suspect]
     Active Substance: CARBOPLATIN
     Dates: end: 20160912
  3. METFORMIN HYDROCHLORIDE. [Suspect]
     Active Substance: METFORMIN HYDROCHLORIDE
     Dates: end: 20161003
  4. TAXOL [Suspect]
     Active Substance: PACLITAXEL
     Dates: end: 20160912

REACTIONS (4)
  - Fall [None]
  - Blood sodium increased [None]
  - Blood creatinine increased [None]
  - Dehydration [None]

NARRATIVE: CASE EVENT DATE: 20161004
